FAERS Safety Report 8352063-9 (Version None)
Quarter: 2012Q2

REPORT INFORMATION
  Report Type: 
  Country: None (occurrence: None)
  Receive Date: 20120511
  Receipt Date: 20120501
  Transmission Date: 20120825
  Serious: Yes (Other)
  Sender: FDA-Public Use
  Company Number: CA-JNJFOC-20120502001

PATIENT
  Sex: Female
  Weight: 50 kg

DRUGS (19)
  1. TRIDURAL [Concomitant]
     Route: 065
  2. LYRICA [Concomitant]
     Route: 065
  3. ORTHO TRI-CYCLEN [Concomitant]
     Route: 065
  4. ELAVIL [Concomitant]
     Route: 065
  5. CELLCEPT [Concomitant]
     Route: 065
  6. MAXALT [Concomitant]
     Route: 065
  7. DOCUSATE/SENNA [Concomitant]
     Route: 065
  8. VITAMIN B-12 [Concomitant]
     Route: 065
  9. POTASSIUM CHLORIDE [Concomitant]
     Route: 065
  10. CALCIUM [Concomitant]
     Route: 065
  11. TRAZODONE HCL [Concomitant]
     Route: 048
  12. PREDNISONE [Concomitant]
     Route: 065
  13. REMICADE [Suspect]
     Indication: RHEUMATOID ARTHRITIS
     Route: 042
     Dates: start: 20110514
  14. RANITIDINE [Concomitant]
     Route: 065
  15. NEXIUM [Concomitant]
     Route: 065
  16. MULTI-VITAMINS [Concomitant]
     Route: 065
  17. CYCLOSPORINE [Concomitant]
     Route: 065
  18. FOLIC ACID [Concomitant]
     Route: 065
  19. LORAZEPAM [Concomitant]
     Route: 048

REACTIONS (3)
  - MIGRAINE [None]
  - INFLUENZA LIKE ILLNESS [None]
  - DEHYDRATION [None]
